FAERS Safety Report 9753867 (Version 2)
Quarter: 2015Q3

REPORT INFORMATION
  Report Type: Spontaneous
  Country: US (occurrence: US)
  Receive Date: 20131213
  Receipt Date: 20150805
  Transmission Date: 20151125
  Serious: No
  Sender: FDA-Public Use
  Company Number: US-GILEAD-2010-0027659

PATIENT
  Age: 46 Year
  Sex: Female
  Weight: 44.68 kg

DRUGS (30)
  1. REVATIO [Concomitant]
     Active Substance: SILDENAFIL CITRATE
  2. MAG-OXIDE [Concomitant]
  3. MULTIVITAMIN/ IRON [Concomitant]
  4. MEPERIDINE [Concomitant]
     Active Substance: MEPERIDINE
  5. OXYBUTYNIN [Concomitant]
     Active Substance: OXYBUTYNIN
  6. SODIUM CHLORIDE BCTRSTATIC [Concomitant]
  7. AMINO ACID [Concomitant]
  8. METOCLOPRAMIDE. [Concomitant]
     Active Substance: METOCLOPRAMIDE
  9. MULTIVITAMIN 12 [Concomitant]
  10. VITAMIN K [Concomitant]
     Active Substance: PHYTONADIONE
  11. LETAIRIS [Suspect]
     Active Substance: AMBRISENTAN
     Indication: PULMONARY ARTERIAL HYPERTENSION
     Route: 048
     Dates: start: 20100130
  12. PAROXETINE [Concomitant]
     Active Substance: PAROXETINE\PAROXETINE HYDROCHLORIDE
  13. ZINC SULFATE [Concomitant]
     Active Substance: ZINC SULFATE\ZINC SULFATE ANHYDROUS
  14. VITAMIN C [Concomitant]
     Active Substance: ASCORBIC ACID
  15. OXYCODONE [Concomitant]
     Active Substance: OXYCODONE
  16. BECLOMETHASONE [Concomitant]
     Active Substance: BECLOMETHASONE
  17. PRILOSEC [Concomitant]
     Active Substance: OMEPRAZOLE MAGNESIUM
  18. SENOKOT [Concomitant]
     Active Substance: SENNOSIDES
  19. LEVOTHYROXINE. [Concomitant]
     Active Substance: LEVOTHYROXINE
  20. EXCEDRIN [Concomitant]
     Active Substance: ACETAMINOPHEN\ASPIRIN\CAFFEINE
  21. NOVOLIN-R [Concomitant]
  22. GLUCAGON. [Concomitant]
     Active Substance: GLUCAGON
  23. TYLENOL [Concomitant]
     Active Substance: ACETAMINOPHEN
  24. COUMADIN [Concomitant]
     Active Substance: WARFARIN SODIUM
  25. DIAZEPAM. [Concomitant]
     Active Substance: DIAZEPAM
  26. CLARITIN [Concomitant]
     Active Substance: LORATADINE
  27. GEMFIBROZIL. [Concomitant]
     Active Substance: GEMFIBROZIL
  28. GABAPENTIN. [Concomitant]
     Active Substance: GABAPENTIN
  29. THERAGRAN [Concomitant]
     Active Substance: VITAMINS
  30. MS CONTIN [Concomitant]
     Active Substance: MORPHINE SULFATE

REACTIONS (1)
  - Gastric disorder [Unknown]
